FAERS Safety Report 9297568 (Version 7)
Quarter: 2013Q3

REPORT INFORMATION
  Report Type: Spontaneous
  Country: US (occurrence: US)
  Receive Date: 20130520
  Receipt Date: 20130923
  Transmission Date: 20140515
  Serious: Yes (Hospitalization)
  Sender: FDA-Public Use
  Company Number: US-PFIZER INC-2013151323

PATIENT
  Age: 46 Year
  Sex: Male
  Weight: 61.68 kg

DRUGS (3)
  1. SUTENT [Suspect]
     Indication: GASTROINTESTINAL STROMAL TUMOUR
     Dosage: 50MG 4WKS ON 2WKS OFF
     Dates: start: 20130418
  2. SUTENT [Suspect]
     Dosage: 50 MG DAILY-28 DAYS ON AND 14 DAYS OFF
     Dates: start: 20130426, end: 201308
  3. ENSURE [Concomitant]
     Dosage: UNK

REACTIONS (7)
  - Infection [Unknown]
  - Haemorrhage [Unknown]
  - Decreased appetite [Unknown]
  - Dysgeusia [Unknown]
  - Musculoskeletal stiffness [Unknown]
  - Disease progression [Unknown]
  - Gastrointestinal stromal tumour [Unknown]
